FAERS Safety Report 4751542-0 (Version None)
Quarter: 2005Q3

REPORT INFORMATION
  Report Type: 
  Country: None (occurrence: None)
  Receive Date: 20050823
  Receipt Date: 20050823
  Transmission Date: 20060218
  Serious: Yes (Death)
  Sender: FDA-Public Use
  Company Number: None

PATIENT
  Age: 62 Year
  Sex: Male
  Weight: 81.6475 kg

DRUGS (4)
  1. FENTANYL [Suspect]
     Indication: CANCER PAIN
     Dosage: Q 72 HOURS
  2. FENTANYL [Suspect]
  3. WARFARIN [Concomitant]
  4. LACTULOSE [Concomitant]

REACTIONS (2)
  - LOSS OF CONSCIOUSNESS [None]
  - RESPIRATORY ARREST [None]
